FAERS Safety Report 19105595 (Version 13)
Quarter: 2021Q3

REPORT INFORMATION
  Report Type: Spontaneous
  Country: GB (occurrence: GB)
  Receive Date: 20210408
  Receipt Date: 20210906
  Transmission Date: 20211014
  Serious: Yes (Disabling, Other)
  Sender: FDA-Public Use
  Company Number: GB-AUROBINDO-AUR-APL-2021-014426

PATIENT
  Age: 24 Year
  Sex: Male

DRUGS (23)
  1. CITALOPRAM [Suspect]
     Active Substance: CITALOPRAM HYDROBROMIDE
     Indication: ILL-DEFINED DISORDER
     Dosage: UNK
     Route: 065
  2. MIRTAZAPINE. [Suspect]
     Active Substance: MIRTAZAPINE
     Dosage: 45 MILLIGRAM, ONCE A DAY, 7.5 MG UPTITRATED TO 45 MG DAILY THE REDUCED DOWN TOSTOP
     Route: 048
     Dates: end: 2015
  3. RISPERIDONE. [Suspect]
     Active Substance: RISPERIDONE
     Indication: ILL-DEFINED DISORDER
  4. MIRTAZAPINE. [Suspect]
     Active Substance: MIRTAZAPINE
     Dosage: 7.5 MG UPTITRATED TO 45 MG DAILY THE REDUCED DOWN TOSTOP
     Route: 048
     Dates: start: 2014, end: 2015
  5. TEMAZEPAM. [Suspect]
     Active Substance: TEMAZEPAM
     Dosage: 10 MILLIGRAM, DAILY
     Route: 048
  6. SERTRALINE [Concomitant]
     Active Substance: SERTRALINE HYDROCHLORIDE
     Indication: ANTIDEPRESSANT THERAPY
     Dosage: 50 MILLIGRAM
     Route: 048
  7. SERTRALINE [Concomitant]
     Active Substance: SERTRALINE HYDROCHLORIDE
     Dosage: 50 MG INITIALLLY
     Route: 048
     Dates: start: 2014
  8. SERTRALINE [Suspect]
     Active Substance: SERTRALINE HYDROCHLORIDE
     Indication: ANTIDEPRESSANT THERAPY
     Dosage: UNK
     Route: 065
  9. TRAZODONE HYDROCHLORIDE. [Suspect]
     Active Substance: TRAZODONE HYDROCHLORIDE
     Indication: ANTIDEPRESSANT THERAPY
     Dosage: 100 MILLIGRAM, ONCE A DAY (INCREASED TO 100 MG DAILY)
     Route: 048
     Dates: start: 2015, end: 201507
  10. ESCITALOPRAM [Suspect]
     Active Substance: ESCITALOPRAM OXALATE
     Indication: ANTIDEPRESSANT THERAPY
     Dosage: 10 MILLIGRAM, ONCE A DAY
     Route: 048
     Dates: end: 201509
  11. RISPERIDONE ORAL SOLUTION [Suspect]
     Active Substance: RISPERIDONE
     Indication: ILL-DEFINED DISORDER
     Dosage: UNK
     Route: 048
  12. CIPRALEX [Suspect]
     Active Substance: ESCITALOPRAM OXALATE
     Indication: ANTIDEPRESSANT THERAPY
     Dosage: UNK
     Route: 065
     Dates: end: 201509
  13. TEMAZEPAM. [Suspect]
     Active Substance: TEMAZEPAM
     Indication: POOR QUALITY SLEEP
     Dosage: UNK
     Route: 048
  14. RISPERIDONE. [Suspect]
     Active Substance: RISPERIDONE
     Indication: ANTIDEPRESSANT THERAPY
     Dosage: UNK
     Route: 048
  15. SERTRALINE [Suspect]
     Active Substance: SERTRALINE HYDROCHLORIDE
     Dosage: 100 MILLIGRAM, UNK
     Route: 048
     Dates: start: 2014
  16. MIRTAZAPINE. [Suspect]
     Active Substance: MIRTAZAPINE
     Indication: ANTIDEPRESSANT THERAPY
     Dosage: UNK
     Route: 065
  17. SERTRALINE [Suspect]
     Active Substance: SERTRALINE HYDROCHLORIDE
     Dosage: 50 MILLIGRAM (50 MG INITIALLY THEN 100 MG )
     Route: 048
     Dates: start: 2014
  18. CITALOPRAM [Suspect]
     Active Substance: CITALOPRAM HYDROBROMIDE
     Dosage: 10 MILLIGRAM
     Route: 065
  19. CITALOPRAM [Suspect]
     Active Substance: CITALOPRAM HYDROBROMIDE
     Dosage: 10 MILLIGRAM, UNK, 10 MG INITIALLY
     Route: 048
     Dates: start: 201507
  20. SERTRALINE [Suspect]
     Active Substance: SERTRALINE HYDROCHLORIDE
     Dosage: 100 MILLIGRAM
     Route: 048
  21. TRAZODONE HYDROCHLORIDE. [Suspect]
     Active Substance: TRAZODONE HYDROCHLORIDE
     Indication: POOR QUALITY SLEEP
     Dosage: 50 MILLIGRAM
     Route: 048
     Dates: end: 201501
  22. CIPRALEX [Suspect]
     Active Substance: ESCITALOPRAM OXALATE
     Dosage: 10 MILLIGRAM, DAILY, 10 MG DAILY
     Route: 048
     Dates: start: 201507, end: 201509
  23. TRAZODONE HYDROCHLORIDE. [Suspect]
     Active Substance: TRAZODONE HYDROCHLORIDE
     Dosage: 50 MILLIGRAM, UNK, 50MG INITAILLY INCREASED TO 100MG DAILY THEN REDUCED TO 50MG BEFORE STOPPING
     Route: 048
     Dates: start: 2015, end: 201507

REACTIONS (25)
  - Somnolence [Unknown]
  - Homicidal ideation [Unknown]
  - Paranoia [Unknown]
  - Intrusive thoughts [Unknown]
  - Loss of libido [Unknown]
  - Hallucination, visual [Unknown]
  - Amnesia [Unknown]
  - Suicidal ideation [Unknown]
  - Anger [Unknown]
  - Mood swings [Unknown]
  - Insomnia [Unknown]
  - Psychotic disorder [Unknown]
  - Product use in unapproved indication [Unknown]
  - Off label use [Unknown]
  - Irritability [Unknown]
  - Nausea [Unknown]
  - Headache [Unknown]
  - Agitation [Unknown]
  - Suicide attempt [Unknown]
  - Hallucination, auditory [Unknown]
  - Feeling abnormal [Unknown]
  - Sedation [Unknown]
  - Aggression [Unknown]
  - Tachyphrenia [Unknown]
  - Confusional state [Unknown]
